FAERS Safety Report 16499669 (Version 1)
Quarter: 2019Q2

REPORT INFORMATION
  Report Type: Spontaneous
  Country: US (occurrence: US)
  Receive Date: 20190520
  Receipt Date: 20190520
  Transmission Date: 20190711
  Serious: Yes (Hospitalization)
  Sender: FDA-Public Use
  Company Number: None

PATIENT
  Age: 76 Year
  Sex: Female

DRUGS (2)
  1. ACTEMRA [Suspect]
     Active Substance: TOCILIZUMAB
     Indication: PRODUCT USED FOR UNKNOWN INDICATION
     Dosage: ?          OTHER DOSE:1 SYR; QOWK INJ SC?
     Route: 058
     Dates: start: 20190118
  2. NOVOLOG [Concomitant]
     Active Substance: INSULIN ASPART

REACTIONS (6)
  - Pain [None]
  - Kidney infection [None]
  - Therapy cessation [None]
  - Condition aggravated [None]
  - Loss of personal independence in daily activities [None]
  - Peripheral swelling [None]

NARRATIVE: CASE EVENT DATE: 201902
